FAERS Safety Report 10650380 (Version 2)
Quarter: 2014Q4

REPORT INFORMATION
  Report Type: Report from Study
  Country: US (occurrence: US)
  Receive Date: 20141213
  Receipt Date: 20141213
  Transmission Date: 20150529
  Serious: Yes (Other)
  Sender: FDA-Public Use
  Company Number: US-MYLANLABS-2014M1010337

PATIENT

DRUGS (1)
  1. AMNESTEEM [Suspect]
     Active Substance: ISOTRETINOIN
     Indication: ACNE CYSTIC
     Dosage: 40 MG, QD
     Route: 048
     Dates: end: 20141103

REACTIONS (5)
  - Social avoidant behaviour [Recovered/Resolved]
  - Self-injurious ideation [Recovered/Resolved]
  - Hypersomnia [Recovered/Resolved]
  - Depression [Recovered/Resolved]
  - Crying [Recovered/Resolved]

NARRATIVE: CASE EVENT DATE: 2014
